FAERS Safety Report 26152729 (Version 1)
Quarter: 2025Q4

REPORT INFORMATION
  Report Type: Spontaneous
  Country: US (occurrence: US)
  Receive Date: 20251214
  Receipt Date: 20251214
  Transmission Date: 20260118
  Serious: Yes (Other)
  Sender: AMGEN
  Company Number: US-AMGEN-USASP2025243510

PATIENT
  Age: 68 Year
  Sex: Male

DRUGS (3)
  1. PREDNISONE [Suspect]
     Active Substance: PREDNISONE
     Indication: Renal transplant
     Dosage: UNK
     Route: 065
  2. TACROLIMUS [Concomitant]
     Active Substance: TACROLIMUS
     Indication: End stage renal disease
     Dosage: UNK
     Route: 065
  3. EVEROLIMUS [Concomitant]
     Active Substance: EVEROLIMUS
     Indication: End stage renal disease
     Dosage: UNK
     Route: 065

REACTIONS (8)
  - Shock [Unknown]
  - Acute kidney injury [Unknown]
  - Hydronephrosis [Unknown]
  - Urosepsis [Unknown]
  - Pathogen resistance [Unknown]
  - Escherichia infection [Unknown]
  - Diarrhoea [Unknown]
  - Malacoplakia [Unknown]
